FAERS Safety Report 12439723 (Version 2)
Quarter: 2016Q2

REPORT INFORMATION
  Report Type: Spontaneous
  Country: DE (occurrence: DE)
  Receive Date: 20160606
  Receipt Date: 20160617
  Transmission Date: 20160815
  Serious: Yes (Life-Threatening, Hospitalization, Other)
  Sender: FDA-Public Use
  Company Number: DE-PFIZER INC-2016282403

PATIENT
  Age: 31 Year
  Sex: Female
  Weight: 60 kg

DRUGS (7)
  1. ZOLOFT [Suspect]
     Active Substance: SERTRALINE HYDROCHLORIDE
     Dosage: 100 MG, 1X/DAY
     Route: 048
     Dates: start: 20160116
  2. PIPAMPERONE [Suspect]
     Active Substance: PIPAMPERONE
     Dosage: UNK
  3. IBUPROFEN. [Suspect]
     Active Substance: IBUPROFEN
     Dosage: UNK
  4. ZOLOFT [Suspect]
     Active Substance: SERTRALINE HYDROCHLORIDE
     Dosage: 50 MG, 1X/DAY
     Route: 048
     Dates: start: 20160111, end: 20160115
  5. NOVALGIN [Suspect]
     Active Substance: METAMIZOLE SODIUM
     Dosage: UNK
  6. THYRONAJOD [Concomitant]
     Active Substance: LEVOTHYROXINE SODIUM\POTASSIUM IODIDE
     Dosage: 50/150 UG
     Route: 048
     Dates: start: 20160122
  7. VOMEX A [Suspect]
     Active Substance: DIMENHYDRINATE
     Dosage: UNK

REACTIONS (3)
  - Suicidal ideation [Unknown]
  - Suicide attempt [Recovered/Resolved]
  - Feeling of despair [Unknown]

NARRATIVE: CASE EVENT DATE: 20160127
